FAERS Safety Report 9927794 (Version 1)
Quarter: 2014Q1

REPORT INFORMATION
  Report Type: Spontaneous
  Country: MX (occurrence: MX)
  Receive Date: 20140227
  Receipt Date: 20140227
  Transmission Date: 20141002
  Serious: Yes (Other)
  Sender: FDA-Public Use
  Company Number: MX-ROCHE-1356940

PATIENT
  Age: 12 Year
  Sex: Female

DRUGS (7)
  1. XOLAIR [Suspect]
     Indication: ASTHMA
     Route: 042
     Dates: start: 201312
  2. XOLAIR [Suspect]
     Indication: DERMATITIS
  3. XOLAIR [Suspect]
     Indication: FOOD ALLERGY
  4. VANNAIR [Concomitant]
  5. SALBUTAMOL [Concomitant]
  6. OMEPRAZOL [Concomitant]
  7. CETRIZINE [Concomitant]

REACTIONS (6)
  - Blood disorder [Not Recovered/Not Resolved]
  - Blood immunoglobulin E increased [Not Recovered/Not Resolved]
  - Pigmentation disorder [Not Recovered/Not Resolved]
  - Swelling [Not Recovered/Not Resolved]
  - Skin exfoliation [Not Recovered/Not Resolved]
  - Incorrect route of drug administration [Unknown]
